FAERS Safety Report 25808074 (Version 1)
Quarter: 2025Q3

REPORT INFORMATION
  Report Type: Spontaneous
  Country: AU (occurrence: AU)
  Receive Date: 20250916
  Receipt Date: 20250916
  Transmission Date: 20251021
  Serious: Yes (Death, Hospitalization, Other)
  Sender: SANDOZ
  Company Number: None

PATIENT
  Age: 65 Year
  Sex: Male

DRUGS (2)
  1. ALLOPURINOL [Suspect]
     Active Substance: ALLOPURINOL
     Indication: Tumour lysis syndrome
     Dosage: 100 MG, QD
     Route: 048
     Dates: start: 202502
  2. METHOTREXATE [Concomitant]
     Active Substance: METHOTREXATE
     Indication: Nervous system disorder
     Route: 037
     Dates: start: 202502

REACTIONS (4)
  - Stenotrophomonas sepsis [Fatal]
  - Myelosuppression [Unknown]
  - Pancytopenia [Unknown]
  - Condition aggravated [Unknown]

NARRATIVE: CASE EVENT DATE: 20250301
